FAERS Safety Report 25585349 (Version 1)
Quarter: 2025Q3

REPORT INFORMATION
  Report Type: Spontaneous
  Country: EU (occurrence: EU)
  Receive Date: 20250721
  Receipt Date: 20250721
  Transmission Date: 20251021
  Serious: Yes (Other)
  Sender: ABBVIE
  Company Number: None

PATIENT
  Age: 36 Year
  Sex: Female

DRUGS (13)
  1. ATOGEPANT [Suspect]
     Active Substance: ATOGEPANT
     Indication: Migraine
     Route: 048
     Dates: start: 20250430, end: 202506
  2. METFORMINA KERN PHARMA [Concomitant]
     Indication: Product used for unknown indication
     Dosage: 1000 MG FILM-COATED TABLETS EFG 50 TABLETS
     Route: 048
     Dates: start: 20250127
  3. OTILONIUM BROMIDE [Concomitant]
     Active Substance: OTILONIUM BROMIDE
     Indication: Product used for unknown indication
     Dosage: 40, 60 TABLETS
     Route: 048
     Dates: start: 20230424
  4. SIBILLA DIARIO [Concomitant]
     Indication: Product used for unknown indication
     Dosage: DAILY 2 MG/0.03 MG FILM-COATED TABLETS EFG, 3 X (21+7) TABLETS
     Route: 048
     Dates: start: 20220203
  5. EZETIMIBA VISO FARMACEUTICA [Concomitant]
     Indication: Product used for unknown indication
     Dosage: 10 MG TABLETS EFG, 28 TABLETS
     Route: 048
     Dates: start: 20240723
  6. ABILIFY MAINTENA [Concomitant]
     Active Substance: ARIPIPRAZOLE
     Indication: Product used for unknown indication
     Dosage: 300 MG POWDER AND SOLVENT FOR EXTENDED-RELEASE INJECTION, 1 VIAL + 1 VIAL OF SOLVENT
     Route: 030
     Dates: start: 20220729
  7. LORAZEPAM KERN PHARMA [Concomitant]
     Indication: Product used for unknown indication
     Dosage: HALF A 5 MG TABLET EVERY 24 HOURS,   1 MG EFG TABLETS, 50 TABLETS
     Route: 048
     Dates: start: 20250515
  8. CIDINE [Concomitant]
     Indication: Product used for unknown indication
     Dosage: 50 TABLETS
     Route: 048
     Dates: start: 20221021
  9. LORAZEPAM [Concomitant]
     Active Substance: LORAZEPAM
     Indication: Product used for unknown indication
     Dosage: HALF A 5 MG TABLET EVERY 24 HOURS,  5 MG EFG TABLETS, 20 TABLETS
     Route: 048
     Dates: start: 20220110
  10. CLOTHIAPINE [Concomitant]
     Active Substance: CLOTHIAPINE
     Indication: Product used for unknown indication
     Dosage: ONE QUARTER TABLET EVERY 24 HOURS, 40 MG TABLETS, 30 TABLETS
     Route: 048
     Dates: start: 20240124
  11. PANTOPRAZOL AUROVITAS [Concomitant]
     Indication: Product used for unknown indication
     Dosage: 20 MG GASTRORE-RESISTANT TABLETS EFG, 28 TABLETS
     Route: 048
     Dates: start: 20220202
  12. FLUTICASONE FUROATE [Concomitant]
     Active Substance: FLUTICASONE FUROATE
     Indication: Product used for unknown indication
     Route: 045
     Dates: start: 20220406
  13. DEXKETOPROFENO MABO [Concomitant]
     Indication: Product used for unknown indication
     Dosage: 25 MG FILM-COATED TABLETS EFG, 20 TABLETS
     Route: 048
     Dates: start: 20241023

REACTIONS (4)
  - Dyspnoea [Recovered/Resolved]
  - Tachycardia [Recovered/Resolved]
  - Urticaria [Recovered/Resolved]
  - Chest discomfort [Recovered/Resolved]

NARRATIVE: CASE EVENT DATE: 20250501
